FAERS Safety Report 24300007 (Version 1)
Quarter: 2024Q3

REPORT INFORMATION
  Report Type: Spontaneous
  Country: US (occurrence: None)
  Receive Date: 20240908
  Receipt Date: 20240908
  Transmission Date: 20241016
  Serious: Yes (Disabling)
  Sender: Public
  Company Number: None

PATIENT
  Age: 61 Year
  Sex: Female
  Weight: 47.7 kg

DRUGS (5)
  1. VORICONAZOLE [Suspect]
     Active Substance: VORICONAZOLE
     Indication: Aspergillus infection
  2. ZOLOFT [Concomitant]
     Active Substance: SERTRALINE HYDROCHLORIDE
  3. PROAIR HFA [Concomitant]
     Active Substance: ALBUTEROL SULFATE
  4. BREO ELLIPTA [Concomitant]
     Active Substance: FLUTICASONE FUROATE\VILANTEROL TRIFENATATE
  5. CHANTIX [Concomitant]
     Active Substance: VARENICLINE TARTRATE

REACTIONS (8)
  - Alopecia [None]
  - Hair growth abnormal [None]
  - Weight decreased [None]
  - Visual impairment [None]
  - Peripheral coldness [None]
  - Paraesthesia [None]
  - Blood cholesterol increased [None]
  - Therapy interrupted [None]

NARRATIVE: CASE EVENT DATE: 20240313
